FAERS Safety Report 6768823-1 (Version None)
Quarter: 2010Q2

REPORT INFORMATION
  Report Type: 
  Country: None (occurrence: None)
  Receive Date: 20100611
  Receipt Date: 20100603
  Transmission Date: 20101027
  Serious: No
  Sender: FDA-Public Use
  Company Number: 1000011449

PATIENT
  Age: 60 Year
  Sex: Female

DRUGS (4)
  1. MEMANTINE HCL [Suspect]
     Indication: DEMENTIA ALZHEIMER'S TYPE
     Dosage: 40 GTT (40 GTT, 1 IN 1 D), ORAL
     Route: 048
     Dates: start: 20090101
  2. MEMANTINE HCL [Suspect]
     Indication: DEMENTIA ALZHEIMER'S TYPE
     Dosage: 30 GTT (15 GTT, 2 IN 1 D), ORAL
     Route: 048
     Dates: start: 20100122
  3. CALCIMAX-D3 EFFERVESCENT (TABLETS) [Concomitant]
  4. IBANDRONIK ACID [Concomitant]

REACTIONS (7)
  - CONDITION AGGRAVATED [None]
  - CONVULSION [None]
  - DELIRIUM [None]
  - DEMENTIA ALZHEIMER'S TYPE [None]
  - DIARRHOEA HAEMORRHAGIC [None]
  - INCORRECT DOSE ADMINISTERED BY DEVICE [None]
  - OVERDOSE [None]
